FAERS Safety Report 19250800 (Version 1)
Quarter: 2021Q2

REPORT INFORMATION
  Report Type: Spontaneous
  Country: DE (occurrence: DE)
  Receive Date: 20210513
  Receipt Date: 20210513
  Transmission Date: 20210717
  Serious: Yes (Hospitalization)
  Sender: FDA-Public Use
  Company Number: DE-TEVA-2021-DE-1909409

PATIENT
  Age: 74 Year
  Sex: Female

DRUGS (7)
  1. VINORELBINE [Suspect]
     Active Substance: VINORELBINE TARTRATE
     Dosage: LAST 27012021
     Route: 065
  2. DUORESP SPIROMAX 160MIKROGRAMM/4,5MIKROGRAMM [Concomitant]
     Dosage: 2 DOSAGE FORMS DAILY; 160|4.5 MCG, 1?0?1?0
     Route: 055
  3. CISPLATIN. [Suspect]
     Active Substance: CISPLATIN
     Dosage: LAST 27012021
     Route: 065
  4. AMLODIPIN [Concomitant]
     Active Substance: AMLODIPINE BESYLATE
     Dosage: 5 MILLIGRAM DAILY; 0?1?0?0
  5. EFEROX [Concomitant]
     Active Substance: LEVOTHYROXINE SODIUM
     Dosage: 75 MICROGRAM DAILY; 1?0?0?0
  6. RAMIPRIL. [Concomitant]
     Active Substance: RAMIPRIL
     Dosage: 5 MILLIGRAM DAILY; 1?0?1?0
  7. AMINEURIN [Concomitant]
     Active Substance: AMITRIPTYLINE HYDROCHLORIDE
     Dosage: 1 DOSAGE FORMS DAILY; 0?0?1?0

REACTIONS (4)
  - Syncope [Unknown]
  - Decreased appetite [Unknown]
  - Renal impairment [Unknown]
  - Asthenia [Unknown]
